FAERS Safety Report 8514584-5 (Version None)
Quarter: 2012Q3

REPORT INFORMATION
  Report Type: 
  Country: None (occurrence: None)
  Receive Date: 20120717
  Receipt Date: 20120709
  Transmission Date: 20120928
  Serious: Yes (Life-Threatening, Hospitalization)
  Sender: FDA-Public Use
  Company Number: US-JNJFOC-20120701149

PATIENT
  Sex: Male
  Weight: 57.61 kg

DRUGS (18)
  1. XARELTO [Suspect]
     Indication: ATRIAL FIBRILLATION
     Route: 048
     Dates: start: 20111214
  2. LASIX [Concomitant]
  3. IMDUR [Concomitant]
  4. XARELTO [Suspect]
     Indication: ATRIAL FLUTTER
     Route: 048
     Dates: start: 20111214
  5. FLOMAX [Concomitant]
  6. MULTIVITAMIN [Concomitant]
  7. SIMVASTATIN [Concomitant]
  8. CITALOPRAM HYDROBROMIDE [Concomitant]
  9. BYSTOLIC [Concomitant]
  10. SYNTHROID [Concomitant]
  11. GLARGINE INSULIN [Concomitant]
  12. XARELTO [Suspect]
     Indication: CEREBROVASCULAR ACCIDENT PROPHYLAXIS
     Route: 048
     Dates: start: 20111214
  13. FLOMAX [Concomitant]
     Dosage: BEDTIME
  14. PREDNISONE [Concomitant]
     Route: 048
  15. HYDRALAZINE HYDROCHLORIDE [Concomitant]
  16. TESSALON [Concomitant]
     Indication: COUGH
  17. VITAMIN D [Concomitant]
  18. POTASSIUM CHLORIDE [Concomitant]

REACTIONS (1)
  - HAEMORRHAGE INTRACRANIAL [None]
